FAERS Safety Report 15574825 (Version 2)
Quarter: 2018Q4

REPORT INFORMATION
  Report Type: Spontaneous
  Country: JP (occurrence: JP)
  Receive Date: 20181101
  Receipt Date: 20181221
  Transmission Date: 20190205
  Serious: Yes (Hospitalization, Other)
  Sender: FDA-Public Use
  Company Number: JP-GLAXOSMITHKLINE-JP2018JPN117006

PATIENT
  Age: 27 Year
  Sex: Male

DRUGS (6)
  1. LAMICTAL [Suspect]
     Active Substance: LAMOTRIGINE
     Indication: BIPOLAR DISORDER
     Dosage: 25 MG, QD(AFTER BREAKFAST)
     Route: 048
     Dates: start: 20170323, end: 201704
  2. ALLELOCK TABLETS [Concomitant]
     Dosage: 5 MG, BID(MORNING, BEFORE BEDTIME)
     Dates: start: 20160531, end: 20170630
  3. ABILIFY [Concomitant]
     Active Substance: ARIPIPRAZOLE
     Dosage: 3 ML, PRN
     Dates: start: 20161227, end: 20171023
  4. STRATTERA [Concomitant]
     Active Substance: ATOMOXETINE HYDROCHLORIDE
     Dosage: 90 MG, QD(MORNING)
     Dates: start: 20170323, end: 20171114
  5. DEPAS TABLETS [Concomitant]
     Active Substance: ETIZOLAM
     Dosage: 0.25 MG, BID(MORNING, NOON)
     Dates: start: 20161108, end: 20170512
  6. STRATTERA [Concomitant]
     Active Substance: ATOMOXETINE HYDROCHLORIDE
     Dosage: 80 MG, QD(MORNING)
     Dates: start: 20160216

REACTIONS (9)
  - Rash [Recovered/Resolved]
  - Oropharyngeal discomfort [Recovering/Resolving]
  - Product use issue [Unknown]
  - Pneumonia [Recovering/Resolving]
  - Skin exfoliation [Recovered/Resolved]
  - Pyrexia [Recovering/Resolving]
  - Nasopharyngitis [Recovering/Resolving]
  - Oropharyngeal pain [Recovering/Resolving]
  - Erythema multiforme [Recovered/Resolved]

NARRATIVE: CASE EVENT DATE: 2017
